FAERS Safety Report 12953658 (Version 1)
Quarter: 2016Q4

REPORT INFORMATION
  Report Type: Spontaneous
  Country: US (occurrence: US)
  Receive Date: 20161118
  Receipt Date: 20161118
  Transmission Date: 20170207
  Serious: Yes (Hospitalization)
  Sender: FDA-Public Use
  Company Number: US-ASTRAZENECA-2016SF21855

PATIENT
  Age: 0 Year
  Sex: Male

DRUGS (1)
  1. SYNAGIS [Suspect]
     Active Substance: PALIVIZUMAB
     Route: 030

REACTIONS (4)
  - Diaphragmatic paralysis [Unknown]
  - Respiratory disorder [Unknown]
  - Immunodeficiency [Unknown]
  - Metabolic disorder [Unknown]

NARRATIVE: CASE EVENT DATE: 2014
